FAERS Safety Report 4427286-1 (Version None)
Quarter: 2004Q3

REPORT INFORMATION
  Report Type: 
  Country: None (occurrence: None)
  Receive Date: 20040817
  Receipt Date: 20040709
  Transmission Date: 20050211
  Serious: Yes (Death, Life-Threatening)
  Sender: FDA-Public Use
  Company Number: 200416865GDDC

PATIENT
  Age: 82 Year
  Sex: Female

DRUGS (1)
  1. LACTULOSE [Suspect]
     Indication: CONSTIPATION
     Dosage: DOSE: UNK

REACTIONS (6)
  - ASPIRATION [None]
  - GENERAL PHYSICAL HEALTH DETERIORATION [None]
  - ILEUS [None]
  - INTESTINAL DILATATION [None]
  - NAUSEA [None]
  - RESPIRATORY FAILURE [None]
